FAERS Safety Report 23093391 (Version 2)
Quarter: 2023Q4

REPORT INFORMATION
  Report Type: Report from Study
  Country: US (occurrence: US)
  Receive Date: 20231022
  Receipt Date: 20231127
  Transmission Date: 20240110
  Serious: Yes (Hospitalization)
  Sender: FDA-Public Use
  Company Number: US-BEIGENE-BGN-2023-011789

PATIENT

DRUGS (2)
  1. BRUKINSA [Suspect]
     Active Substance: ZANUBRUTINIB
     Indication: Chronic lymphocytic leukaemia
     Dosage: 160 MILLIGRAM, BID
     Route: 048
     Dates: start: 20230509
  2. BRUKINSA [Suspect]
     Active Substance: ZANUBRUTINIB
     Dosage: 160 MILLIGRAM, BID
     Route: 048
     Dates: start: 20230509

REACTIONS (4)
  - Blood pressure increased [Unknown]
  - Back pain [Unknown]
  - Hypotension [Unknown]
  - Fracture [Unknown]
